FAERS Safety Report 13007993 (Version 1)
Quarter: 2016Q4

REPORT INFORMATION
  Report Type: Spontaneous
  Country: US (occurrence: US)
  Receive Date: 20161208
  Receipt Date: 20161208
  Transmission Date: 20170207
  Serious: No
  Sender: FDA-Public Use
  Company Number: ALCN2016US008316

PATIENT
  Age: 46 Year
  Sex: Female

DRUGS (3)
  1. SYSTANE NIGHTTIME [Concomitant]
     Active Substance: MINERAL OIL\PETROLATUM
     Indication: DRY EYE
     Dosage: 1 DF, QHS
     Route: 047
     Dates: start: 201607
  2. SYSTANE (HYPROMELLOSE 2910 (4000 MPA.S)) [Concomitant]
     Active Substance: HYPROMELLOSE 2910 (4000 MPA.S)
     Indication: DRY EYE
     Dosage: 2 GTT, PRN
     Route: 047
     Dates: start: 201607
  3. TRAVATAN Z [Suspect]
     Active Substance: TRAVOPROST
     Indication: OCULAR HYPERTENSION
     Dosage: 1 GTT, QHS
     Route: 047
     Dates: start: 20160729, end: 201609

REACTIONS (2)
  - Dry eye [Not Recovered/Not Resolved]
  - Ocular discomfort [Not Recovered/Not Resolved]

NARRATIVE: CASE EVENT DATE: 201607
